FAERS Safety Report 22173517 (Version 2)
Quarter: 2023Q2

REPORT INFORMATION
  Report Type: Report from Study
  Country: CA (occurrence: CA)
  Receive Date: 20230404
  Receipt Date: 20230428
  Transmission Date: 20230722
  Serious: Yes (Death)
  Sender: FDA-Public Use
  Company Number: CA-HLS-202300804

PATIENT
  Age: 41 Year
  Sex: Male

DRUGS (13)
  1. CLOZARIL [Suspect]
     Active Substance: CLOZAPINE
     Indication: Schizophrenia
     Route: 048
     Dates: start: 20211221, end: 20230304
  2. CLOZARIL [Suspect]
     Active Substance: CLOZAPINE
     Indication: Product used for unknown indication
     Route: 048
     Dates: start: 20211221, end: 20230304
  3. CLOZARIL [Suspect]
     Active Substance: CLOZAPINE
     Indication: Schizophrenia
     Dosage: 100 MG AM + 200 MG QHS
     Route: 048
     Dates: start: 2022, end: 20230304
  4. CLOZARIL [Suspect]
     Active Substance: CLOZAPINE
     Indication: Product used for unknown indication
     Dosage: 100 MG AM + 200 MG QHS
     Route: 048
     Dates: start: 2022, end: 20230304
  5. VITAMIN B [Concomitant]
     Active Substance: VITAMIN B
     Indication: Malnutrition
     Dosage: 2000IU (VALUE PROVIDED AS IU)
     Route: 048
     Dates: end: 20230304
  6. ASCORBIC ACID [Concomitant]
     Active Substance: ASCORBIC ACID
     Indication: Malnutrition
     Dosage: 500MG BID
     Route: 048
     Dates: end: 20230304
  7. LORAZEPAM [Concomitant]
     Active Substance: LORAZEPAM
     Indication: Depression
     Dosage: 0.5MG BID
     Route: 048
     Dates: end: 20230304
  8. FINASTERIDE [Concomitant]
     Active Substance: FINASTERIDE
     Indication: Benign prostatic hyperplasia
     Dosage: 1MG
     Route: 048
     Dates: end: 20230304
  9. MELATONIN [Concomitant]
     Active Substance: MELATONIN
     Indication: Product used for unknown indication
     Dosage: 9MG
     Route: 048
     Dates: end: 20230304
  10. ROSUVASTATIN [Concomitant]
     Active Substance: ROSUVASTATIN
     Indication: Lipids increased
     Dosage: 5MG ONCE DAILY
     Route: 048
     Dates: end: 20230304
  11. BUSPIRONE [Concomitant]
     Active Substance: BUSPIRONE HYDROCHLORIDE
     Indication: Depression
     Dosage: 10MG BID
     Route: 048
     Dates: end: 20230304
  12. SERTRALINE [Concomitant]
     Active Substance: SERTRALINE HYDROCHLORIDE
     Indication: Depression
     Dosage: 100MG
     Route: 048
     Dates: end: 20230304
  13. FERROUS FUMARATE [Concomitant]
     Active Substance: FERROUS FUMARATE
     Indication: Anaemia
     Dosage: 300MG BID
     Route: 048
     Dates: end: 20230304

REACTIONS (1)
  - Completed suicide [Fatal]

NARRATIVE: CASE EVENT DATE: 20230304
